FAERS Safety Report 9930628 (Version 1)
Quarter: 2014Q1

REPORT INFORMATION
  Report Type: Spontaneous
  Country: FR (occurrence: FR)
  Receive Date: 20140227
  Receipt Date: 20140227
  Transmission Date: 20141002
  Serious: Yes (Hospitalization)
  Sender: FDA-Public Use
  Company Number: FR-B.I. PHARMACEUTICALS,INC./RIDGEFIELD-2014-BI-08011FF

PATIENT
  Age: 58 Year
  Sex: Male

DRUGS (4)
  1. JOSIR [Suspect]
     Indication: PRODUCT USED FOR UNKNOWN INDICATION
     Route: 065
     Dates: start: 2004
  2. ENDOXAN [Suspect]
     Indication: MULTIPLE SCLEROSIS
     Dosage: DOSE PER APPLICATION: 0.0333
     Route: 042
     Dates: start: 2004, end: 2006
  3. FENOFIBRATE [Suspect]
     Indication: DYSLIPIDAEMIA
     Route: 065
     Dates: start: 2004
  4. ALLOPURINOL [Suspect]
     Indication: HYPERURICAEMIA
     Route: 065
     Dates: start: 2004

REACTIONS (2)
  - Congestive cardiomyopathy [Unknown]
  - Cardiac failure [Unknown]
